FAERS Safety Report 25028779 (Version 2)
Quarter: 2025Q2

REPORT INFORMATION
  Report Type: Report from Study
  Country: US (occurrence: US)
  Receive Date: 20250302
  Receipt Date: 20250416
  Transmission Date: 20250717
  Serious: Yes (Disabling, Other)
  Sender: ABBVIE
  Company Number: US-ABBVIE-6155514

PATIENT
  Age: 77 Year
  Sex: Female

DRUGS (1)
  1. HUMIRA [Suspect]
     Active Substance: ADALIMUMAB
     Indication: Product used for unknown indication
     Route: 058
     Dates: start: 202408

REACTIONS (11)
  - Systemic lupus erythematosus [Unknown]
  - Disability [Unknown]
  - Renal injury [Unknown]
  - Protein urine present [Unknown]
  - Pain [Recovering/Resolving]
  - Rheumatoid arthritis [Unknown]
  - Chloasma [Not Recovered/Not Resolved]
  - Skin disorder [Not Recovered/Not Resolved]
  - Respiration abnormal [Recovered/Resolved]
  - Blood viscosity increased [Recovered/Resolved]
  - Thrombosis [Recovered/Resolved]

NARRATIVE: CASE EVENT DATE: 20240301
